FAERS Safety Report 5575061-7 (Version None)
Quarter: 2007Q4

REPORT INFORMATION
  Report Type: 
  Country: None (occurrence: None)
  Receive Date: 20071130
  Receipt Date: 20070730
  Transmission Date: 20080405
  Serious: No
  Sender: FDA-Public Use
  Company Number: US200707007100

PATIENT
  Age: 63 Year
  Sex: Male
  Weight: 80.3 kg

DRUGS (12)
  1. BYETTA [Suspect]
     Indication: TYPE 2 DIABETES MELLITUS
     Dosage: 5 UG, 2/D, SUBCUTANEOUS
     Route: 058
     Dates: start: 20070706
  2. ACTOS /USA/ (PIOGLITAZONE HYDROCHLORIDE) [Concomitant]
  3. PRANDIN /USA/ (REPAGLINIDE) [Concomitant]
  4. SYNTHROID [Concomitant]
  5. LESCOL [Concomitant]
  6. ADVAIR DISKUS 100/50 [Concomitant]
  7. SPIRIVA [Concomitant]
  8. SINGULAIR [Concomitant]
  9. NEXIUM /USA/ (LISINOPRIL) [Concomitant]
  10. ASPIRIN [Concomitant]
  11. AZOPT [Concomitant]
  12. NASACORT AQ (TRIAMCINOLONE ACETONIDE) [Concomitant]

REACTIONS (5)
  - ANGER [None]
  - CONFUSIONAL STATE [None]
  - INJECTION SITE BRUISING [None]
  - IRRITABILITY [None]
  - MEMORY IMPAIRMENT [None]
